FAERS Safety Report 7544244-9 (Version None)
Quarter: 2011Q2

REPORT INFORMATION
  Report Type: 
  Country: None (occurrence: None)
  Receive Date: 20110613
  Receipt Date: 20070514
  Transmission Date: 20111010
  Serious: Yes (Other)
  Sender: FDA-Public Use
  Company Number: PHHO2007JP08411

PATIENT
  Sex: Male

DRUGS (4)
  1. DIOVAN [Suspect]
     Indication: HYPERTENSION
     Dosage: 80 MG, UNK
     Route: 048
     Dates: start: 20030704, end: 20070122
  2. CONIEL [Concomitant]
  3. ALLOPURINOL [Concomitant]
  4. URINORM [Concomitant]

REACTIONS (1)
  - RENAL NEOPLASM [None]
